FAERS Safety Report 14844220 (Version 5)
Quarter: 2020Q3

REPORT INFORMATION
  Report Type: Spontaneous
  Country: DE (occurrence: DE)
  Receive Date: 20180503
  Receipt Date: 20180919
  Transmission Date: 20201105
  Serious: Yes (Death, Other)
  Sender: FDA-Public Use
  Company Number: DE-BAUSCH-DSA_31515_2008

PATIENT
  Age: 71 Year
  Sex: Female

DRUGS (92)
  1. DIGITOXIN [Suspect]
     Active Substance: DIGITOXIN
     Indication: CARDIAC FAILURE
     Dosage: 0.07 MG 1?6 TIMES A DAY
     Route: 048
     Dates: start: 20041014, end: 20041027
  2. FUROSEMIDE. [Suspect]
     Active Substance: FUROSEMIDE
     Route: 042
     Dates: start: 20041102, end: 20041111
  3. KALINOR?BRAUSETABLETTEN [Suspect]
     Active Substance: POTASSIUM CARBONATE\POTASSIUM CITRATE
     Dosage: EFFERVESCENT TABLET
     Route: 048
     Dates: start: 20041023, end: 20041025
  4. PANTOPRAZOLE [Suspect]
     Active Substance: PANTOPRAZOLE
     Indication: PROPHYLAXIS
  5. MORPHINE [Concomitant]
     Active Substance: MORPHINE
     Indication: PRODUCT USED FOR UNKNOWN INDICATION
     Dates: start: 20041106, end: 20041109
  6. TAVANIC [Concomitant]
     Active Substance: LEVOFLOXACIN
     Indication: PRODUCT USED FOR UNKNOWN INDICATION
     Route: 065
     Dates: start: 20041107, end: 20041110
  7. TAZOBACTAM [Concomitant]
     Active Substance: TAZOBACTAM
     Indication: PRODUCT USED FOR UNKNOWN INDICATION
     Dates: start: 20041007, end: 20041015
  8. CARBAMAZEPINE. [Suspect]
     Active Substance: CARBAMAZEPINE
     Indication: AGITATION
     Dosage: MODIFIED?RELEASE
     Route: 048
     Dates: start: 20041101, end: 20041102
  9. KALINOR?BRAUSETABLETTEN [Suspect]
     Active Substance: POTASSIUM CARBONATE\POTASSIUM CITRATE
     Dosage: EFFERVESCENT TABLET
     Route: 048
     Dates: start: 20041102, end: 20041104
  10. LENDORMIN [Suspect]
     Active Substance: BROTIZOLAM
     Indication: SLEEP DISORDER
     Route: 048
     Dates: start: 20041015, end: 20041024
  11. METOCLOPRAMIDE. [Suspect]
     Active Substance: METOCLOPRAMIDE
     Dosage: 20?80 DROPS DAILY
     Route: 048
     Dates: start: 20041025, end: 20041028
  12. POTASSIUM CITRATE. [Suspect]
     Active Substance: POTASSIUM CITRATE
     Route: 048
     Dates: start: 20001102, end: 20041104
  13. PROTHAZIN [Concomitant]
     Indication: PRODUCT USED FOR UNKNOWN INDICATION
     Dosage: 100?200 MG DAILY
     Route: 065
     Dates: start: 20041105, end: 20041110
  14. AMPHO?MORONAL [Concomitant]
     Active Substance: AMPHOTERICIN B
     Indication: PRODUCT USED FOR UNKNOWN INDICATION
     Dosage: DOSAGE FORM; FOR SUSPENSION
     Route: 065
     Dates: start: 20041106, end: 20041110
  15. POLYSPECTRAN TROPFEN [Concomitant]
     Indication: PRODUCT USED FOR UNKNOWN INDICATION
     Route: 065
     Dates: start: 20041108, end: 20041111
  16. LORAZEPAM. [Suspect]
     Active Substance: LORAZEPAM
     Indication: SLEEP DISORDER
     Route: 048
     Dates: start: 20041014, end: 20041014
  17. SIMVASTATIN. [Suspect]
     Active Substance: SIMVASTATIN
     Indication: SLEEP DISORDER
     Route: 048
     Dates: start: 20141014, end: 20141014
  18. CLEXANE [Suspect]
     Active Substance: ENOXAPARIN SODIUM
     Indication: THROMBOSIS PROPHYLAXIS
     Route: 058
     Dates: start: 20041011, end: 20041028
  19. INSULIN LISPRO [Suspect]
     Active Substance: INSULIN LISPRO
     Indication: DIABETES MELLITUS
  20. METOCLOPRAMIDE. [Suspect]
     Active Substance: METOCLOPRAMIDE
     Dosage: 1 VIAL
     Route: 042
     Dates: start: 20041024, end: 20041025
  21. SODIUM CHLORIDE. [Suspect]
     Active Substance: SODIUM CHLORIDE
     Indication: FLUID REPLACEMENT
     Route: 042
     Dates: start: 20041024, end: 20041027
  22. SODIUM CHLORIDE. [Suspect]
     Active Substance: SODIUM CHLORIDE
     Indication: HYPERTHYROIDISM
     Route: 048
     Dates: start: 20041006, end: 20041105
  23. ELECTROLYTES NOS [Suspect]
     Active Substance: ELECTROLYTES NOS
     Indication: FLUID REPLACEMENT
     Route: 042
     Dates: start: 20041002, end: 20041111
  24. DIFLUCAN [Concomitant]
     Active Substance: FLUCONAZOLE
     Indication: PRODUCT USED FOR UNKNOWN INDICATION
     Route: 065
     Dates: start: 20041106, end: 20041110
  25. DERMATOP [Concomitant]
     Active Substance: PREDNICARBATE
     Indication: PRODUCT USED FOR UNKNOWN INDICATION
     Route: 065
     Dates: start: 20041110, end: 20041110
  26. DELIX (RAMIPRIL) [Suspect]
     Active Substance: RAMIPRIL
     Indication: ESSENTIAL HYPERTENSION
     Route: 048
     Dates: start: 20041007, end: 20041031
  27. POTASSIUM CHLORIDE. [Suspect]
     Active Substance: POTASSIUM CHLORIDE
     Route: 042
     Dates: start: 20041027, end: 20041027
  28. POTASSIUM CHLORIDE. [Suspect]
     Active Substance: POTASSIUM CHLORIDE
     Route: 042
     Dates: start: 20041102, end: 20041104
  29. POTASSIUM CHLORIDE. [Suspect]
     Active Substance: POTASSIUM CHLORIDE
     Route: 048
     Dates: start: 20041115, end: 20041120
  30. POTASSIUM CHLORIDE. [Suspect]
     Active Substance: POTASSIUM CHLORIDE
     Route: 048
     Dates: start: 20041023, end: 20041025
  31. THIAMAZOLE [Suspect]
     Active Substance: METHIMAZOLE
     Indication: HYPERTHYROIDISM
     Route: 048
     Dates: start: 20041006, end: 20041105
  32. TORASEMIDE [Suspect]
     Active Substance: TORSEMIDE
     Indication: RENAL FAILURE
     Dosage: 1?4 TABLETS DAILY
     Route: 048
     Dates: start: 20041012, end: 20041031
  33. FERRO?SANOL DUODENAL [Suspect]
     Active Substance: FERROUS GLYCINE SULFATE
     Indication: MINERAL SUPPLEMENTATION
     Route: 048
     Dates: start: 20041103, end: 20041107
  34. DIGITOXIN [Concomitant]
     Active Substance: DIGITOXIN
     Indication: PRODUCT USED FOR UNKNOWN INDICATION
     Dosage: 1/2 VIAL DAILY
     Dates: start: 20041106, end: 20041108
  35. AMPICILLIN SODIUM. [Concomitant]
     Active Substance: AMPICILLIN SODIUM
     Indication: PRODUCT USED FOR UNKNOWN INDICATION
     Dates: start: 20041106, end: 20041106
  36. DELIX (RAMIPRIL) [Suspect]
     Active Substance: RAMIPRIL
     Indication: HYPERTENSION
     Route: 048
     Dates: start: 20041101, end: 20041102
  37. KALINOR?BRAUSETABLETTEN [Suspect]
     Active Substance: POTASSIUM CARBONATE\POTASSIUM CITRATE
     Indication: HYPOKALAEMIA
     Dosage: EFFERVESCENT TABLET
     Route: 048
     Dates: start: 20041015, end: 20041020
  38. CLARITHROMYCIN. [Suspect]
     Active Substance: CLARITHROMYCIN
     Indication: PNEUMONIA
     Dosage: 2?3 DAILY
     Route: 048
     Dates: start: 20041018, end: 20041024
  39. METOCLOPRAMIDE. [Suspect]
     Active Substance: METOCLOPRAMIDE
     Indication: NAUSEA
     Route: 048
     Dates: start: 20041023, end: 20041023
  40. POTASSIUM CHLORIDE. [Suspect]
     Active Substance: POTASSIUM CHLORIDE
     Indication: HYPOKALAEMIA
     Dosage: 3 TO 6 TABLETS DAILY;MODIFIED?RELEASE TABLET
     Route: 048
     Dates: start: 20041025, end: 20041027
  41. POTASSIUM CITRATE. [Suspect]
     Active Substance: POTASSIUM CITRATE
     Indication: HYPOKALAEMIA
     Route: 048
     Dates: start: 20041015, end: 20041020
  42. ROHYPNOL [Suspect]
     Active Substance: FLUNITRAZEPAM
     Indication: AGITATION
     Route: 065
     Dates: start: 20041018, end: 20041018
  43. ASS STADA [Suspect]
     Active Substance: ASPIRIN
     Indication: THROMBOSIS PROPHYLAXIS
     Route: 048
     Dates: start: 20040729, end: 20041107
  44. JONOSTERIL (CALCIUM ACETATE\MAGNESIUM ACETATE\POTASSIUM ACETATE\SODIUM ACETATE\SODIUM CHLORIDE) [Suspect]
     Active Substance: CALCIUM ACETATE\MAGNESIUM ACETATE\POTASSIUM ACETATE\SODIUM ACETATE\SODIUM CHLORI
     Indication: FLUID REPLACEMENT
     Dosage: 1000 TO 2000 ML DAILY
     Route: 042
     Dates: start: 20041002, end: 20041111
  45. FURESIS [Concomitant]
     Active Substance: FUROSEMIDE
     Indication: POLYURIA
     Route: 042
     Dates: start: 20041102, end: 20041111
  46. GLUCOSE [Concomitant]
     Active Substance: DEXTROSE
     Indication: HYPOGLYCAEMIA
     Dosage: DOSAGE FORM
     Route: 042
     Dates: start: 20041102, end: 20041102
  47. RAMIPRIL HEXAL COMP [Concomitant]
     Indication: ESSENTIAL HYPERTENSION
     Dosage: 0.5 TABLET 1 TIME PER 1 DAY
     Route: 048
     Dates: start: 20041101, end: 20041102
  48. NOVALGIN (CAFFEINE\PARACETAMOL\PROPYPHENAZONE) [Concomitant]
     Active Substance: ACETAMINOPHEN\CAFFEINE\PROPYPHENAZONE
     Indication: PRODUCT USED FOR UNKNOWN INDICATION
     Route: 065
     Dates: start: 20041017, end: 20041017
  49. ZYRTEC [Concomitant]
     Active Substance: CETIRIZINE HYDROCHLORIDE
     Indication: PRODUCT USED FOR UNKNOWN INDICATION
     Route: 065
     Dates: start: 20041110, end: 20041110
  50. LORAZEPAM. [Suspect]
     Active Substance: LORAZEPAM
     Route: 048
     Dates: start: 20041030, end: 20041030
  51. SIMVASTATIN. [Suspect]
     Active Substance: SIMVASTATIN
     Route: 048
     Dates: start: 20141030, end: 20141030
  52. HYDROCHLOROTHIAZIDE. [Suspect]
     Active Substance: HYDROCHLOROTHIAZIDE
     Indication: HYPERTENSION
     Route: 048
     Dates: start: 20041012, end: 20041031
  53. FUROSEMIDE. [Suspect]
     Active Substance: FUROSEMIDE
     Indication: POLYURIA
     Route: 048
     Dates: start: 20041101, end: 20041101
  54. INSULIN LISPRO [Suspect]
     Active Substance: INSULIN LISPRO
     Indication: HYPOGLYCAEMIA
     Dosage: 24?24?26 I.U. DAILY
     Route: 058
     Dates: start: 20040729, end: 20041110
  55. LENDORMIN [Suspect]
     Active Substance: BROTIZOLAM
     Indication: SLEEP DISORDER
     Route: 048
     Dates: start: 20041103, end: 20041103
  56. PANTOPRAZOLE [Suspect]
     Active Substance: PANTOPRAZOLE
     Indication: GASTROINTESTINAL ULCER
     Route: 048
     Dates: start: 20041007, end: 20041031
  57. POTASSIUM CHLORIDE. [Suspect]
     Active Substance: POTASSIUM CHLORIDE
     Dosage: 3 ? 6 TABLETS DAILY
     Route: 048
     Dates: start: 20041101, end: 20041101
  58. ATORVASTATIN CALCIUM. [Suspect]
     Active Substance: ATORVASTATIN CALCIUM
     Indication: HYPERCHOLESTEROLAEMIA
     Route: 048
     Dates: start: 20040729, end: 20041102
  59. DEXTROSE. [Suspect]
     Active Substance: DEXTROSE
     Indication: HYPOGLYCAEMIA
     Route: 042
     Dates: start: 20041102, end: 20041102
  60. METOPROLOL SUCCINATE. [Concomitant]
     Active Substance: METOPROLOL SUCCINATE
     Indication: HYPERTENSION
     Dosage: MODIFIED?RELEASE TABLET,
     Route: 048
     Dates: start: 20041101, end: 20041107
  61. RAMIPRIL HEXAL COMP [Concomitant]
     Indication: HYPERTENSION
     Route: 048
     Dates: start: 20041007, end: 20041031
  62. PERFALGAN [Concomitant]
     Active Substance: ACETAMINOPHEN
     Indication: PRODUCT USED FOR UNKNOWN INDICATION
     Route: 065
     Dates: start: 20041014, end: 20041014
  63. PERFALGAN [Concomitant]
     Active Substance: ACETAMINOPHEN
     Route: 065
     Dates: start: 20041021, end: 20041021
  64. METOCLOPRAMIDE HYDROCHLORIDE. [Suspect]
     Active Substance: METOCLOPRAMIDE HYDROCHLORIDE
     Indication: NAUSEA
     Route: 048
     Dates: start: 20041024, end: 20041025
  65. ASPIRIN. [Suspect]
     Active Substance: ASPIRIN
     Indication: THROMBOSIS PROPHYLAXIS
     Route: 048
     Dates: start: 20040729, end: 20041107
  66. ALLOPURINOL. [Suspect]
     Active Substance: ALLOPURINOL
     Indication: HYPERURICAEMIA
     Route: 048
     Dates: start: 20041024, end: 20041102
  67. DIGITOXIN [Suspect]
     Active Substance: DIGITOXIN
     Dosage: 0.07 MG 1?6 TIMES DAILY
     Route: 048
     Dates: start: 20041103, end: 20041111
  68. HYDROCHLOROTHIAZIDE. [Suspect]
     Active Substance: HYDROCHLOROTHIAZIDE
     Indication: ESSENTIAL HYPERTENSION
  69. EUNERPAN [Suspect]
     Active Substance: MELPERONE HYDROCHLORIDE
     Route: 048
     Dates: start: 20041102, end: 20041107
  70. IRENAT [Suspect]
     Active Substance: SODIUM PERCHLORATE
     Indication: HYPERTHYROIDISM
     Dosage: 60 GTT
     Route: 048
     Dates: start: 20041006, end: 20041105
  71. LOPERAMIDE [Suspect]
     Active Substance: LOPERAMIDE
     Indication: DIARRHOEA
     Dosage: 2 DF, QD
     Route: 048
     Dates: start: 20041031, end: 20041031
  72. TORASEMIDE [Suspect]
     Active Substance: TORSEMIDE
     Dosage: 1?4 TABLETS DAILY
     Route: 048
     Dates: start: 20041102, end: 20041105
  73. DIPIPERON [Concomitant]
     Active Substance: PIPAMPERONE
     Indication: CONFUSIONAL STATE
     Route: 048
     Dates: start: 20041103, end: 20041104
  74. DIPIPERON [Concomitant]
     Active Substance: PIPAMPERONE
     Indication: DISORIENTATION
  75. GLUCOSE [Concomitant]
     Active Substance: DEXTROSE
     Dosage: DOSAGE FORM
     Route: 042
     Dates: start: 20041108, end: 20041108
  76. PREDNISOLONE SODIUM SUCCINATE [Concomitant]
     Active Substance: PREDNISOLONE SODIUM SUCCINATE
     Indication: PRODUCT USED FOR UNKNOWN INDICATION
     Route: 065
     Dates: start: 20041105, end: 20041110
  77. TAZOBAC [Concomitant]
     Active Substance: PIPERACILLIN SODIUM\TAZOBACTAM SODIUM
     Indication: PRODUCT USED FOR UNKNOWN INDICATION
     Route: 065
     Dates: start: 20041007, end: 20041015
  78. FENISTIL [Concomitant]
     Active Substance: DIMETHINDENE
     Indication: PRODUCT USED FOR UNKNOWN INDICATION
     Dates: start: 20071104, end: 20071107
  79. UNACID (AMPICILLIN SODIUM\SULBACTAM SODIUM) [Concomitant]
     Active Substance: AMPICILLIN SODIUM\SULBACTAM SODIUM
     Indication: PRODUCT USED FOR UNKNOWN INDICATION
     Route: 065
     Dates: start: 20041106, end: 20041106
  80. PROMETHAZINE HYDROCHLORIDE. [Concomitant]
     Active Substance: PROMETHAZINE HYDROCHLORIDE
     Indication: PRODUCT USED FOR UNKNOWN INDICATION
     Dates: start: 20041105, end: 20041108
  81. METOPROLOL SUCCINATE. [Suspect]
     Active Substance: METOPROLOL SUCCINATE
     Indication: ACUTE MYOCARDIAL INFARCTION
     Route: 048
     Dates: start: 20041012, end: 20041031
  82. EUNERPAN [Suspect]
     Active Substance: MELPERONE HYDROCHLORIDE
     Indication: SLEEP DISORDER
     Route: 048
     Dates: start: 20041030, end: 20041031
  83. CLOPIDOGREL BISULFATE. [Suspect]
     Active Substance: CLOPIDOGREL BISULFATE
     Indication: THROMBOSIS PROPHYLAXIS
     Route: 048
     Dates: start: 20041005, end: 20041107
  84. LANTUS [Suspect]
     Active Substance: INSULIN GLARGINE
     Indication: DIABETES MELLITUS
     Dosage: 30?60 I.U. DAILY
     Route: 058
     Dates: start: 20040729, end: 20041110
  85. LENDORMIN [Suspect]
     Active Substance: BROTIZOLAM
     Route: 048
     Dates: start: 20041110, end: 20041110
  86. POTASSIUM CITRATE. [Suspect]
     Active Substance: POTASSIUM CITRATE
     Route: 048
     Dates: start: 20041023, end: 20041025
  87. METHIMAZOLE. [Suspect]
     Active Substance: METHIMAZOLE
     Indication: HYPERTHYROIDISM
     Route: 048
     Dates: start: 20041006, end: 20041105
  88. FERROUS SULFATE. [Suspect]
     Active Substance: FERROUS SULFATE
     Indication: MINERAL SUPPLEMENTATION
     Route: 048
     Dates: start: 20041103, end: 20041107
  89. DEXTROSE. [Suspect]
     Active Substance: DEXTROSE
     Route: 042
     Dates: start: 20041108, end: 20041108
  90. HALOPERIDOL. [Suspect]
     Active Substance: HALOPERIDOL
     Indication: CONFUSIONAL STATE
     Route: 065
     Dates: start: 20041104, end: 20041105
  91. ROHYPNOL [Concomitant]
     Active Substance: FLUNITRAZEPAM
     Indication: PRODUCT USED FOR UNKNOWN INDICATION
     Dates: start: 20041018, end: 20041018
  92. FENISTIL [Concomitant]
     Active Substance: DIMETHINDENE
     Indication: PRODUCT USED FOR UNKNOWN INDICATION
     Route: 065
     Dates: start: 20041105, end: 20041105

REACTIONS (1)
  - Stevens-Johnson syndrome [Fatal]

NARRATIVE: CASE EVENT DATE: 20041111
